FAERS Safety Report 8548024-7 (Version None)
Quarter: 2012Q3

REPORT INFORMATION
  Report Type: 
  Country: None (occurrence: None)
  Receive Date: 20120730
  Receipt Date: 20120724
  Transmission Date: 20120928
  Serious: Yes (Hospitalization)
  Sender: FDA-Public Use
  Company Number: CA-ROCHE-1092585

PATIENT
  Sex: Female

DRUGS (4)
  1. XELODA [Suspect]
     Indication: COLORECTAL CANCER METASTATIC
     Route: 048
     Dates: start: 20120106, end: 20120401
  2. LOVAZA [Concomitant]
  3. GLUCOSAMINE [Concomitant]
  4. TAPAZOLE [Concomitant]

REACTIONS (1)
  - MEDICAL DEVICE COMPLICATION [None]
